FAERS Safety Report 6219773-0 (Version None)
Quarter: 2009Q2

REPORT INFORMATION
  Report Type: 
  Country: None (occurrence: None)
  Receive Date: 20090609
  Receipt Date: 20090601
  Transmission Date: 20091009
  Serious: Yes (Death)
  Sender: FDA-Public Use
  Company Number: A0789413A

PATIENT
  Sex: Female
  Weight: 68 kg

DRUGS (1)
  1. SERETIDE [Suspect]
     Indication: CHRONIC OBSTRUCTIVE PULMONARY DISEASE
     Dosage: 1PUFF PER DAY
     Route: 065

REACTIONS (3)
  - CARDIAC DISORDER [None]
  - INFECTION [None]
  - RESPIRATORY FAILURE [None]
